FAERS Safety Report 6652148-9 (Version None)
Quarter: 2010Q1

REPORT INFORMATION
  Report Type: 
  Country: None (occurrence: None)
  Receive Date: 20100323
  Receipt Date: 20100316
  Transmission Date: 20100710
  Serious: Yes (Life-Threatening)
  Sender: FDA-Public Use
  Company Number: 2010US000902

PATIENT
  Sex: Female

DRUGS (1)
  1. LEXISCAN [Suspect]
     Indication: SCAN MYOCARDIAL PERFUSION
     Dosage: 0.4 MG, TOTAL DOSE, IV BOLUS
     Route: 040
     Dates: start: 20100304, end: 20100304

REACTIONS (1)
  - RESPIRATORY ARREST [None]
